FAERS Safety Report 23099534 (Version 1)
Quarter: 2023Q4

REPORT INFORMATION
  Report Type: Spontaneous
  Country: US (occurrence: None)
  Receive Date: 20231020
  Receipt Date: 20231020
  Transmission Date: 20240110
  Serious: Yes (Hospitalization)
  Sender: FDA-Public Use
  Company Number: None

PATIENT
  Sex: Female
  Weight: 88.3 kg

DRUGS (2)
  1. FLUOROURACIL [Suspect]
     Active Substance: FLUOROURACIL
  2. MITOMYCIN C [Concomitant]
     Active Substance: MITOMYCIN

REACTIONS (5)
  - Pancytopenia [None]
  - Febrile neutropenia [None]
  - Arthralgia [None]
  - Marrow hyperplasia [None]
  - Acute myeloid leukaemia [None]

NARRATIVE: CASE EVENT DATE: 20230619
